FAERS Safety Report 16277931 (Version 7)
Quarter: 2021Q4

REPORT INFORMATION
  Report Type: Spontaneous
  Country: US (occurrence: US)
  Receive Date: 20190506
  Receipt Date: 20211015
  Transmission Date: 20220304
  Serious: Yes (Hospitalization, Other)
  Sender: FDA-Public Use
  Company Number: US-GILEAD-2019-0405253

PATIENT
  Age: 32 Year
  Sex: Female
  Weight: 81.65 kg

DRUGS (37)
  1. TRUVADA [Suspect]
     Active Substance: EMTRICITABINE\TENOFOVIR DISOPROXIL FUMARATE
     Indication: HIV infection
     Dosage: UNK
     Route: 048
     Dates: start: 2011, end: 201603
  2. TRUVADA [Suspect]
     Active Substance: EMTRICITABINE\TENOFOVIR DISOPROXIL FUMARATE
     Dosage: UNK
     Route: 048
     Dates: start: 2011, end: 201606
  3. TRUVADA [Suspect]
     Active Substance: EMTRICITABINE\TENOFOVIR DISOPROXIL FUMARATE
     Dosage: UNK
     Route: 048
     Dates: start: 20110830, end: 20160428
  4. TRUVADA [Suspect]
     Active Substance: EMTRICITABINE\TENOFOVIR DISOPROXIL FUMARATE
     Dosage: UNK
     Route: 048
     Dates: start: 20110830, end: 20160328
  5. BIKTARVY [Concomitant]
     Active Substance: BICTEGRAVIR SODIUM\EMTRICITABINE\TENOFOVIR ALAFENAMIDE FUMARATE
  6. DESCOVY [Concomitant]
     Active Substance: EMTRICITABINE\TENOFOVIR ALAFENAMIDE FUMARATE
  7. SYMTUZA [Concomitant]
     Active Substance: COBICISTAT\DARUNAVIR\EMTRICITABINE\TENOFOVIR ALAFENAMIDE
  8. ACETAMINOPHEN [Concomitant]
     Active Substance: ACETAMINOPHEN
  9. ACYCLOVIR [Concomitant]
     Active Substance: ACYCLOVIR
  10. ASPIRIN [Concomitant]
     Active Substance: ASPIRIN
  11. PENICILLIN G [Concomitant]
     Active Substance: PENICILLIN G
  12. PREDNISONE [Concomitant]
     Active Substance: PREDNISONE
  13. EPZICOM [Concomitant]
     Active Substance: ABACAVIR SULFATE\LAMIVUDINE
  14. NORVIR [Concomitant]
     Active Substance: RITONAVIR
  15. PREZCOBIX [Concomitant]
     Active Substance: COBICISTAT\DARUNAVIR ETHANOLATE
  16. PREZISTA [Concomitant]
     Active Substance: DARUNAVIR ETHANOLATE
  17. SUSTIVA [Concomitant]
     Active Substance: EFAVIRENZ
  18. OXYCODONE AND ACETAMINOPHEN [Concomitant]
     Active Substance: ACETAMINOPHEN\OXYCODONE HYDROCHLORIDE
  19. ADVAIR HFA [Concomitant]
     Active Substance: FLUTICASONE PROPIONATE\SALMETEROL XINAFOATE
  20. CEFUROXIME [Concomitant]
     Active Substance: CEFUROXIME
  21. CEPHALEXIN [Concomitant]
     Active Substance: CEPHALEXIN
  22. CLINDAMYCIN [Concomitant]
     Active Substance: CLINDAMYCIN
  23. DRONABINOL [Concomitant]
     Active Substance: DRONABINOL
  24. DOXYCYCLINE [Concomitant]
     Active Substance: DOXYCYCLINE
  25. DULOXETINE [Concomitant]
     Active Substance: DULOXETINE
  26. FLUTICASONE [Concomitant]
     Active Substance: FLUTICASONE
  27. GABAPENTIN [Concomitant]
     Active Substance: GABAPENTIN
  28. LOSARTAN [Concomitant]
     Active Substance: LOSARTAN
  29. CLONIDINE [Concomitant]
     Active Substance: CLONIDINE
  30. HYDRALAZINE [Concomitant]
     Active Substance: HYDRALAZINE HYDROCHLORIDE
  31. CARVEDILOL [Concomitant]
     Active Substance: CARVEDILOL
  32. ONDANSETRON [Concomitant]
     Active Substance: ONDANSETRON
  33. FUROSEMIDE [Concomitant]
     Active Substance: FUROSEMIDE
  34. ELIQUIS [Concomitant]
     Active Substance: APIXABAN
  35. LYRICA [Concomitant]
     Active Substance: PREGABALIN
  36. ABACAVIR/LAMIVUDINE ZENTIVA [Concomitant]
  37. TRIUMEQ [Concomitant]
     Active Substance: ABACAVIR SULFATE\DOLUTEGRAVIR SODIUM\LAMIVUDINE

REACTIONS (15)
  - End stage renal disease [Not Recovered/Not Resolved]
  - Chronic kidney disease [Unknown]
  - Renal failure [Unknown]
  - Tubulointerstitial nephritis [Unknown]
  - Tooth loss [Not Recovered/Not Resolved]
  - Economic problem [Unknown]
  - Emotional distress [Unknown]
  - Anhedonia [Unknown]
  - Bone density decreased [Unknown]
  - Oedema peripheral [Not Recovered/Not Resolved]
  - Gait disturbance [Not Recovered/Not Resolved]
  - Depression [Not Recovered/Not Resolved]
  - Anxiety [Not Recovered/Not Resolved]
  - Asthenia [Unknown]
  - Pain [Unknown]

NARRATIVE: CASE EVENT DATE: 20160601
